FAERS Safety Report 6683565-9 (Version None)
Quarter: 2010Q2

REPORT INFORMATION
  Report Type: 
  Country: None (occurrence: None)
  Receive Date: 20100413
  Receipt Date: 20100330
  Transmission Date: 20101027
  Serious: Yes (Other)
  Sender: FDA-Public Use
  Company Number: DSJ-2010-03211

PATIENT
  Age: 77 Year
  Sex: Female

DRUGS (12)
  1. BENICAR [Suspect]
     Indication: HYPERTENSION
     Dosage: 40 MG (40 MG, 1 IN 1 D), PER ORAL; 20 MG (20 MG,1 IN 1 D), PER ORAL
     Route: 048
     Dates: start: 20100201, end: 20100201
  2. BENICAR [Suspect]
     Indication: HYPERTENSION
     Dosage: 40 MG (40 MG, 1 IN 1 D), PER ORAL; 20 MG (20 MG,1 IN 1 D), PER ORAL
     Route: 048
     Dates: start: 20100201
  3. BROMOPRIDE (BROMOPRIDE) (BROMOPRIDE) [Concomitant]
  4. ALPRAZOLAM [Concomitant]
  5. OXCARBAZEPINE (OXCARBAZEPINE) (OXCARBAZEPINE) [Concomitant]
  6. ISOSORBIDE (ISOSORBIDE) (ISOSORBIDE) [Concomitant]
  7. PANTOPRAZOLE SODIUM (PANTOPRAZOLE SODIUM) (PANTOPRAZOLE SODIUM) [Concomitant]
  8. CILOSTAZOL (CILOSTAZOL) (CILOSTAZOL) [Concomitant]
  9. SITAGLIPTIN (SITAGLIPTIN) (SITAGLIPTIN) [Concomitant]
  10. MEMANTINE (MEMANTINE) (MEMANTINE) [Concomitant]
  11. DIVALPROEX SODIUM (VALPROATE SEMISODIUM) (VALPROATE SEMISODIUM) [Concomitant]
  12. LERCANIDIPINE (LERCANIDIPINE) (LERCANIDIPINE) [Concomitant]

REACTIONS (5)
  - DRUG INEFFECTIVE [None]
  - HYPERHIDROSIS [None]
  - HYPERTENSION [None]
  - HYPOTENSION [None]
  - PALLOR [None]
